FAERS Safety Report 6756171-5 (Version None)
Quarter: 2010Q2

REPORT INFORMATION
  Report Type: 
  Country: None (occurrence: None)
  Receive Date: 20100604
  Receipt Date: 20100521
  Transmission Date: 20101027
  Serious: Yes (Hospitalization, Other)
  Sender: FDA-Public Use
  Company Number: PHEH2006US01242

PATIENT

DRUGS (55)
  1. ZOMETA [Suspect]
     Indication: BREAST CANCER METASTATIC
     Dosage: 4 MG, QMO
     Dates: start: 20020801, end: 20051001
  2. FEMARA [Concomitant]
     Indication: BREAST CANCER METASTATIC
     Dosage: UNK
     Dates: start: 20020801
  3. ZELNORM                                 /USA/ [Concomitant]
     Indication: IRRITABLE BOWEL SYNDROME
  4. CELEXA [Concomitant]
  5. SYNTHROID [Concomitant]
  6. DOXYCYCLINE [Concomitant]
  7. ZYRTEC [Concomitant]
  8. SINGULAIR [Concomitant]
  9. DIFLUCAN [Concomitant]
  10. CONCERTA [Concomitant]
  11. FASLODEX [Concomitant]
     Dosage: 5 ML, QMO
     Route: 030
  12. BEVACIZUMAB [Concomitant]
  13. QVAR 40 [Concomitant]
  14. NASACORT [Concomitant]
  15. PAXIL [Concomitant]
  16. MARINOL [Concomitant]
  17. MARIJUANA [Concomitant]
  18. CORTISONE [Concomitant]
  19. LEVOTHYROXINE SODIUM [Concomitant]
  20. LEXAPRO [Concomitant]
  21. WELLBUTRIN XL [Concomitant]
  22. SIMVASTATIN [Concomitant]
  23. ZELNORM                                 /CAN/ [Concomitant]
  24. PROVIGIL [Concomitant]
  25. VALTREX [Concomitant]
  26. AZITHROMYCIN [Concomitant]
  27. PANTOPRAZOLE [Concomitant]
  28. TAMOXIFEN CITRATE [Concomitant]
  29. DRONABINOL [Concomitant]
  30. AVASTIN [Concomitant]
  31. LEVOXYL [Concomitant]
  32. AMBIEN [Concomitant]
  33. KEFLEX [Concomitant]
  34. ABILIFY [Concomitant]
  35. ATIVAN [Concomitant]
  36. RADIATION THERAPY [Concomitant]
  37. BECLOMETHASONE AQUEOUS [Concomitant]
  38. ACIPHEX [Concomitant]
  39. SPIRIVA [Concomitant]
  40. PROZAC [Concomitant]
  41. ASPIRIN [Concomitant]
  42. ACYCLOVIR [Concomitant]
  43. PREDNISOLONE [Concomitant]
  44. PHENAZOPYRIDINE HCL TAB [Concomitant]
  45. MYCOLOG [Concomitant]
  46. ESTRING [Concomitant]
  47. SINEQUAN [Concomitant]
  48. LORAZEPAM [Concomitant]
  49. MONTELUKAST [Concomitant]
  50. METOCLOPRAMIDE [Concomitant]
  51. REGLAN [Concomitant]
  52. TEMAZEPAM [Concomitant]
  53. ACIDOPHILUS ^ZYMA^ [Concomitant]
  54. TETRACYCLINE [Concomitant]
  55. PRILOSEC [Concomitant]

REACTIONS (54)
  - ABDOMINAL PAIN UPPER [None]
  - ACUTE CORONARY SYNDROME [None]
  - ANXIETY [None]
  - BACK PAIN [None]
  - BLOOD CALCIUM INCREASED [None]
  - BLOOD CHOLESTEROL INCREASED [None]
  - BLOOD CORTISOL ABNORMAL [None]
  - BONE DISORDER [None]
  - BONE LESION [None]
  - BRONCHITIS [None]
  - CHEST PAIN [None]
  - CHILLS [None]
  - CHRONIC OBSTRUCTIVE PULMONARY DISEASE [None]
  - CONSTIPATION [None]
  - DEPRESSION [None]
  - DYSPEPSIA [None]
  - DYSURIA [None]
  - EAR CONGESTION [None]
  - EOSINOPHIL COUNT INCREASED [None]
  - FALL [None]
  - FIBROCYSTIC BREAST DISEASE [None]
  - GASTROOESOPHAGEAL REFLUX DISEASE [None]
  - HAEMATOCRIT INCREASED [None]
  - HEPATIC CYST [None]
  - HIATUS HERNIA [None]
  - HUMERUS FRACTURE [None]
  - INFECTED SEBACEOUS CYST [None]
  - INTERVERTEBRAL DISC PROTRUSION [None]
  - JAW OPERATION [None]
  - KNEE OPERATION [None]
  - LIBIDO DECREASED [None]
  - LUMBAR SPINAL STENOSIS [None]
  - MENISCUS REMOVAL [None]
  - METASTASES TO LIVER [None]
  - METASTASES TO SPINE [None]
  - METASTASES TO THORAX [None]
  - MICTURITION URGENCY [None]
  - NAUSEA [None]
  - OSTEONECROSIS OF JAW [None]
  - PAIN [None]
  - PAIN IN EXTREMITY [None]
  - POLLAKIURIA [None]
  - PULMONARY CONGESTION [None]
  - RADIOTHERAPY TO BRAIN [None]
  - RED BLOOD CELL COUNT INCREASED [None]
  - SLEEP DISORDER [None]
  - SPINAL OSTEOARTHRITIS [None]
  - STRESS [None]
  - SUICIDAL IDEATION [None]
  - URINARY INCONTINENCE [None]
  - URINARY TRACT INFECTION [None]
  - VASCULAR ANOMALY [None]
  - VULVOVAGINAL DRYNESS [None]
  - WHITE BLOOD CELL COUNT DECREASED [None]
